FAERS Safety Report 7660818-9 (Version None)
Quarter: 2011Q3

REPORT INFORMATION
  Report Type: 
  Country: None (occurrence: None)
  Receive Date: 20110805
  Receipt Date: 20101109
  Transmission Date: 20111222
  Serious: No
  Sender: FDA-Public Use
  Company Number: US-ABBOTT-10P-163-0684220-00

PATIENT
  Sex: Female
  Weight: 77.18 kg

DRUGS (7)
  1. ASPIRIN [Concomitant]
     Indication: PRODUCT USED FOR UNKNOWN INDICATION
  2. NIASPAN [Suspect]
     Indication: HIGH DENSITY LIPOPROTEIN DECREASED
  3. NIASPAN [Suspect]
     Indication: BLOOD TRIGLYCERIDES INCREASED
     Dosage: AT BEDTIME
     Dates: start: 20100601
  4. IMITREX [Concomitant]
     Indication: PRODUCT USED FOR UNKNOWN INDICATION
  5. ZIAC [Concomitant]
     Indication: PRODUCT USED FOR UNKNOWN INDICATION
  6. NISEDICAL [Concomitant]
     Indication: PRODUCT USED FOR UNKNOWN INDICATION
  7. TRICOR [Concomitant]
     Indication: PRODUCT USED FOR UNKNOWN INDICATION

REACTIONS (3)
  - FLUSHING [None]
  - PARAESTHESIA [None]
  - FEELING HOT [None]
